FAERS Safety Report 19382813 (Version 1)
Quarter: 2021Q2

REPORT INFORMATION
  Report Type: Spontaneous
  Country: ES (occurrence: ES)
  Receive Date: 20210607
  Receipt Date: 20210607
  Transmission Date: 20210717
  Serious: Yes (Hospitalization)
  Sender: FDA-Public Use
  Company Number: ES-MYLANLABS-2021M1032714

PATIENT
  Age: 57 Year
  Sex: Male

DRUGS (3)
  1. DACORTIN [Concomitant]
     Active Substance: PREDNISONE
     Dosage: UNK
  2. PANTOPRAZOLE MYLAN PHARMA 40 MG, COMPRIM? GASTRO?R?SISTANT [Suspect]
     Active Substance: PANTOPRAZOLE
     Indication: GASTROOESOPHAGEAL REFLUX DISEASE
     Dosage: NEXIUM (ESOMEPRAZOLE) SACHETS ARE 10MG EACH, 2 TABLETS A DAY
  3. MOTILIUM [Concomitant]
     Active Substance: DOMPERIDONE
     Dosage: UNK UNK, QD

REACTIONS (2)
  - Pneumonia [Recovered/Resolved]
  - Off label use [Unknown]

NARRATIVE: CASE EVENT DATE: 202105
